FAERS Safety Report 12357685 (Version 1)
Quarter: 2016Q2

REPORT INFORMATION
  Report Type: Spontaneous
  Country: US (occurrence: US)
  Receive Date: 20160512
  Receipt Date: 20160512
  Transmission Date: 20160815
  Serious: No
  Sender: FDA-Public Use
  Company Number: US-BIOGEN-2016BI00208871

PATIENT

DRUGS (1)
  1. TECFIDERA [Suspect]
     Active Substance: DIMETHYL FUMARATE
     Indication: MULTIPLE SCLEROSIS
     Route: 065

REACTIONS (7)
  - Needle fatigue [Unknown]
  - Flushing [Unknown]
  - Walking aid user [Unknown]
  - Muscle spasticity [Unknown]
  - Balance disorder [Unknown]
  - Muscle fatigue [Unknown]
  - Muscle spasms [Unknown]
